FAERS Safety Report 25018048 (Version 1)
Quarter: 2025Q1

REPORT INFORMATION
  Report Type: Spontaneous
  Country: US (occurrence: None)
  Receive Date: 20250227
  Receipt Date: 20250227
  Transmission Date: 20250408
  Serious: Yes (Disabling, Other)
  Sender: FDA-CTU
  Company Number: None

PATIENT

DRUGS (1)
  1. PROHANCE [Suspect]
     Active Substance: GADOTERIDOL
     Route: 042

REACTIONS (5)
  - Nausea [None]
  - Skin burning sensation [None]
  - Headache [None]
  - Joint range of motion decreased [None]
  - Post procedural complication [None]

NARRATIVE: CASE EVENT DATE: 20241031
